FAERS Safety Report 5709805-8 (Version None)
Quarter: 2008Q2

REPORT INFORMATION
  Report Type: 
  Country: None (occurrence: None)
  Receive Date: 20080418
  Receipt Date: 20080407
  Transmission Date: 20081010
  Serious: Yes (Life-Threatening, Hospitalization)
  Sender: FDA-Public Use
  Company Number: CH-ROCHE-556606

PATIENT
  Sex: Male

DRUGS (4)
  1. NAPROXEN [Suspect]
     Indication: FEELING OF DESPAIR
     Dosage: REPORTED AS ONE DOSE OF 9.5 GRAMS
     Route: 048
     Dates: start: 20080305, end: 20080305
  2. ETHANOL [Suspect]
     Indication: FEELING OF DESPAIR
     Dosage: 50 CL WODKA AND 3 DL BEER.
     Route: 065
     Dates: start: 20080305, end: 20080305
  3. CRESTOR [Concomitant]
  4. METFORMIN HCL [Concomitant]

REACTIONS (3)
  - ARRHYTHMIA [None]
  - OVERDOSE [None]
  - SINUS ARREST [None]
